FAERS Safety Report 5742001-7 (Version None)
Quarter: 2008Q2

REPORT INFORMATION
  Report Type: 
  Country: None (occurrence: None)
  Receive Date: 20080514
  Receipt Date: 20080514
  Transmission Date: 20081010
  Serious: Yes (Other)
  Sender: FDA-Public Use
  Company Number: None

PATIENT
  Age: 37 Year
  Sex: Female
  Weight: 177 kg

DRUGS (1)
  1. GABAPENTIN [Suspect]
     Indication: DIABETIC NEUROPATHY
     Dosage: 300MG TID PO
     Route: 048
     Dates: start: 20030708, end: 20071231

REACTIONS (7)
  - CONFUSIONAL STATE [None]
  - DEAFNESS [None]
  - HAEMODIALYSIS [None]
  - HALLUCINATION [None]
  - MYOCLONUS [None]
  - RENAL FAILURE ACUTE [None]
  - THERAPEUTIC AGENT TOXICITY [None]
